FAERS Safety Report 16862141 (Version 2)
Quarter: 2025Q2

REPORT INFORMATION
  Report Type: Report from Study
  Country: FR (occurrence: FR)
  Receive Date: 20190927
  Receipt Date: 20250630
  Transmission Date: 20250717
  Serious: Yes (Other)
  Sender: AUROBINDO
  Company Number: FR-AUROBINDO-AUR-APL-2019-062883

PATIENT
  Age: 14 Year
  Sex: Female

DRUGS (1)
  1. ACETAMINOPHEN [Suspect]
     Active Substance: ACETAMINOPHEN
     Indication: Self-destructive behaviour
     Route: 065

REACTIONS (3)
  - Nephritis [Recovering/Resolving]
  - Tubulointerstitial nephritis [Recovering/Resolving]
  - Toxicity to various agents [Recovering/Resolving]
